FAERS Safety Report 6699756-7 (Version None)
Quarter: 2010Q2

REPORT INFORMATION
  Report Type: 
  Country: None (occurrence: None)
  Receive Date: 20100428
  Receipt Date: 20100414
  Transmission Date: 20101027
  Serious: Yes (Hospitalization)
  Sender: FDA-Public Use
  Company Number: DE-BAYER-201021936GPV

PATIENT
  Age: 16 Year
  Sex: Female

DRUGS (4)
  1. LEVONORGESTREL + ETHINYL ESTRADIOL [Suspect]
     Indication: ORAL CONTRACEPTION
     Route: 048
     Dates: start: 20080201, end: 20090914
  2. CERVARIX [Suspect]
     Indication: IMMUNISATION
     Route: 030
     Dates: start: 20090205, end: 20090205
  3. CERVARIX [Suspect]
     Route: 030
     Dates: start: 20090312, end: 20090312
  4. CERVARIX [Suspect]
     Route: 030
     Dates: start: 20090813, end: 20090813

REACTIONS (4)
  - CEREBRAL INFARCTION [None]
  - FACIAL PARESIS [None]
  - SENSORY DISTURBANCE [None]
  - SPEECH DISORDER [None]
